FAERS Safety Report 24712810 (Version 2)
Quarter: 2025Q1

REPORT INFORMATION
  Report Type: Spontaneous
  Country: JP (occurrence: JP)
  Receive Date: 20241209
  Receipt Date: 20250117
  Transmission Date: 20250408
  Serious: Yes (Hospitalization)
  Sender: ELI LILLY AND COMPANY
  Company Number: JP-NShinyaku-EVA202408543ZZLILLY

PATIENT
  Age: 60 Year
  Sex: Male
  Weight: 73.3 kg

DRUGS (2)
  1. TADALAFIL [Suspect]
     Active Substance: TADALAFIL
     Indication: Pulmonary hypertension
     Dosage: 20 MG, DAILY
     Route: 048
     Dates: start: 20221202, end: 202304
  2. TADALAFIL [Suspect]
     Active Substance: TADALAFIL
     Route: 048
     Dates: start: 202304, end: 202304

REACTIONS (4)
  - Haemoptysis [Unknown]
  - Pulmonary alveolar haemorrhage [Unknown]
  - Dyspnoea [Unknown]
  - Dyspnoea [Unknown]

NARRATIVE: CASE EVENT DATE: 20221218
